FAERS Safety Report 7776803-2 (Version None)
Quarter: 2011Q3

REPORT INFORMATION
  Report Type: 
  Country: None (occurrence: None)
  Receive Date: 20110923
  Receipt Date: 20110923
  Transmission Date: 20111222
  Serious: Yes (Hospitalization)
  Sender: FDA-Public Use
  Company Number: None

PATIENT
  Sex: Male
  Weight: 84.6 kg

DRUGS (2)
  1. CISPLATIN [Suspect]
     Dosage: 150 MG
     Dates: end: 20110824
  2. ETOPOSIDE [Suspect]
     Dosage: 600 MG
     Dates: end: 20110826

REACTIONS (8)
  - MALAISE [None]
  - OROPHARYNGEAL PAIN [None]
  - DECREASED APPETITE [None]
  - FEBRILE NEUTROPENIA [None]
  - COUGH [None]
  - RHINORRHOEA [None]
  - CHILLS [None]
  - WHITE BLOOD CELL COUNT DECREASED [None]
